FAERS Safety Report 11599149 (Version 2)
Quarter: 2020Q4

REPORT INFORMATION
  Report Type: Spontaneous
  Country: US (occurrence: US)
  Receive Date: 20151006
  Receipt Date: 20201110
  Transmission Date: 20210113
  Serious: Yes (Life-Threatening, Hospitalization)
  Sender: FDA-Public Use
  Company Number: US-MYLANLABS-2015M1033308

PATIENT
  Age: 51 Year
  Sex: Male
  Weight: 100 kg

DRUGS (11)
  1. INSULIN GLARGINE [Suspect]
     Active Substance: INSULIN GLARGINE
     Indication: HYPOTENSION
     Dosage: 1 U/KG/HOUR
     Route: 042
  2. INSULIN GLARGINE [Suspect]
     Active Substance: INSULIN GLARGINE
     Indication: BRADYCARDIA
     Dosage: TITRATED UP BY 1 U/ KG/HOUR APPROXIMATELY EVERY 15 MINUTES
     Route: 042
  3. AMLODIPINE [Suspect]
     Active Substance: AMLODIPINE BESYLATE
     Indication: PRODUCT USED FOR UNKNOWN INDICATION
     Dosage: 5 MILLIGRAM;40 TABLETS MIXTURE OF METOPROLOL TARTRATE AND AMLODIPINE
     Route: 048
  4. DEXTROSE. [Concomitant]
     Active Substance: DEXTROSE
     Dosage: TITRATED DOWN TO 75 ML/HOUR IN 25 ML/HOUR INCREMENTS EVERY 2 HOUR
     Route: 042
  5. DEXTROSE. [Concomitant]
     Active Substance: DEXTROSE
     Indication: PROPHYLAXIS
     Dosage: 150 MILLILITER, QH
     Route: 042
  6. INSULIN GLARGINE [Suspect]
     Active Substance: INSULIN GLARGINE
     Dosage: MAXIMUM OF 10 U/KG/ HOUR OVER THE 2 HOURS AFTER ARRIVAL TO THE TERTIARY FACILITY
     Route: 042
  7. DEXTROSE. [Concomitant]
     Active Substance: DEXTROSE
     Indication: PROPHYLAXIS
     Route: 042
  8. CALCIUM GLUCONATE. [Concomitant]
     Active Substance: CALCIUM GLUCONATE
     Indication: HYPOTENSION
     Dosage: 3 GRAM
     Route: 065
  9. METOPROLOL. [Suspect]
     Active Substance: METOPROLOL
     Indication: PRODUCT USED FOR UNKNOWN INDICATION
     Dosage: 25 MILLIGRAM; 40 TABLETS MIXTURE OF METOPROLOL TARTRATE AND AMLODIPINE
     Route: 048
  10. EPINEPHRINE. [Concomitant]
     Active Substance: EPINEPHRINE
     Indication: HYPOTENSION
     Dosage: 0.2 MICROGRAM/KILOGRAM, QMINUTE
  11. EPINEPHRINE. [Concomitant]
     Active Substance: EPINEPHRINE
     Indication: BRADYCARDIA

REACTIONS (10)
  - Somnolence [Unknown]
  - Vomiting [Unknown]
  - Nodal arrhythmia [Unknown]
  - Hypotension [Recovering/Resolving]
  - Depressed level of consciousness [Recovered/Resolved]
  - Hypomagnesaemia [Unknown]
  - Suicide attempt [Unknown]
  - Blood creatinine increased [Recovered/Resolved]
  - Hypokalaemia [Unknown]
  - Intentional overdose [Unknown]
